FAERS Safety Report 5147140-X (Version None)
Quarter: 2006Q4

REPORT INFORMATION
  Report Type: 
  Country: None (occurrence: None)
  Receive Date: 20061103
  Receipt Date: 20061018
  Transmission Date: 20070319
  Serious: Yes (Death)
  Sender: FDA-Public Use
  Company Number: VNL_0244_ 2006

PATIENT
  Sex: Male

DRUGS (1)
  1. APO-GO [Suspect]
     Dosage: DF UNK SC
     Route: 058

REACTIONS (1)
  - ILEUS [None]
